FAERS Safety Report 8853588 (Version 2)
Quarter: 2013Q1

REPORT INFORMATION
  Report Type: Report from Study
  Country: JP (occurrence: JP)
  Receive Date: 20121023
  Receipt Date: 20130313
  Transmission Date: 20140127
  Serious: Yes (Other)
  Sender: FDA-Public Use
  Company Number: JP-009507513-1210JPN008819

PATIENT
  Age: 42 Year
  Sex: Male

DRUGS (15)
  1. PEGINTRON [Suspect]
     Indication: CHRONIC HEPATITIS C
     Dosage: 1.30 MICROGRAM PER KILOGRAM, QW
     Route: 058
     Dates: start: 20120814, end: 20120814
  2. PEGINTRON [Suspect]
     Dosage: 0.96 MICROGRAM PER KILOGRAM, QW
     Route: 058
     Dates: start: 20120820, end: 20120917
  3. PEGINTRON [Suspect]
     Dosage: 1.30 MICROGRAM PER KILOGRAM, QW
     Route: 058
     Dates: start: 20120924, end: 20130126
  4. REBETOL [Suspect]
     Indication: CHRONIC HEPATITIS C
     Dosage: 800 MG, QD
     Route: 048
     Dates: start: 20120814, end: 20130126
  5. TELAVIC [Suspect]
     Indication: CHRONIC HEPATITIS C
     Dosage: 2250 MG, QD
     Route: 048
     Dates: start: 20120814, end: 20120830
  6. TELAVIC [Suspect]
     Dosage: 1500 MG, QD
     Route: 048
     Dates: start: 20120831
  7. PREDNISOLONE [Concomitant]
     Dosage: 20 MG, QD ,FORMULATION: POR
     Route: 048
     Dates: start: 20120831, end: 20120904
  8. PREDNISOLONE [Concomitant]
     Dosage: 15 MG, QD, FORMULATION: POR
     Route: 048
     Dates: start: 20120905, end: 20120913
  9. PREDNISOLONE [Concomitant]
     Dosage: 10 MG, QD, FORMULATION: POR
     Route: 048
     Dates: start: 20120914, end: 20120920
  10. PREDNISOLONE [Concomitant]
     Dosage: 5 MG, QD , FORMULATION: POR
     Route: 048
     Dates: start: 20120921, end: 20120927
  11. PREDNISOLONE [Concomitant]
     Dosage: 4 MG, QD , FORMULATION: POR
     Route: 048
     Dates: start: 20120928, end: 20121004
  12. PREDNISOLONE [Concomitant]
     Dosage: 3 MG, QD , FORMULATION: POR
     Route: 048
     Dates: start: 20121005, end: 20121011
  13. PREDNISOLONE [Concomitant]
     Dosage: 2 MG, QD ,  FORMULATION: POR
     Route: 048
     Dates: start: 20121012, end: 20121018
  14. PREDNISOLONE [Concomitant]
     Dosage: 1 MG, QD ,  FORMULATION: POR
     Route: 048
     Dates: start: 20121019, end: 20121025
  15. ZYLORIC [Concomitant]
     Indication: HYPERURICAEMIA
     Dosage: 200 UNK, FORMULATION:POR
     Route: 048

REACTIONS (1)
  - Granulocyte count decreased [Recovering/Resolving]
